FAERS Safety Report 5190649-3 (Version None)
Quarter: 2006Q4

REPORT INFORMATION
  Report Type: 
  Country: None (occurrence: None)
  Receive Date: 20061222
  Receipt Date: 20061026
  Transmission Date: 20070319
  Serious: No
  Sender: FDA-Public Use
  Company Number: US-BRISTOL-MYERS SQUIBB COMPANY-13557434

PATIENT
  Age: 51 Year
  Sex: Female
  Weight: 52 kg

DRUGS (10)
  1. ORENCIA [Suspect]
     Indication: RHEUMATOID ARTHRITIS
     Route: 042
     Dates: start: 20061024
  2. FLECAINIDE ACETATE [Concomitant]
  3. CARTIA XT [Concomitant]
  4. ESTRACE [Concomitant]
  5. ARAVA [Concomitant]
  6. PERCOCET [Concomitant]
  7. SOMA [Concomitant]
  8. VALIUM [Concomitant]
  9. PROFEN FORTE [Concomitant]
  10. MECLIZINE [Concomitant]

REACTIONS (8)
  - DYSGRAPHIA [None]
  - FATIGUE [None]
  - HEADACHE [None]
  - MALAISE [None]
  - NAUSEA [None]
  - PAIN [None]
  - SPEECH DISORDER [None]
  - VISION BLURRED [None]
